FAERS Safety Report 4336111-9 (Version None)
Quarter: 2004Q2

REPORT INFORMATION
  Report Type: 
  Country: None (occurrence: None)
  Receive Date: 20040407
  Receipt Date: 20040324
  Transmission Date: 20050107
  Serious: Yes (Hospitalization)
  Sender: FDA-Public Use
  Company Number: F01200400643

PATIENT
  Age: 74 Year
  Sex: Female

DRUGS (7)
  1. (OXALIPLATIN) - SOLUTION - 100 MG/M2 [Suspect]
     Indication: COLORECTAL CANCER METASTATIC
     Dosage: 200 MG Q2W, INTRAVENOUS
     Route: 042
     Dates: start: 20040323, end: 20040323
  2. FLUOROURACIL [Suspect]
     Dosage: 400 MG/M2  BOLUS  INTRAVENOUS NOS
     Route: 042
     Dates: start: 20040323
  3. LEUCOVORIN CALCIUM [Suspect]
     Dosage: 400 MG/M2 BOLUS + 2400 MG/M2 OVER 46 HOURS, INTRAVENOUS NOS
     Route: 042
     Dates: start: 20040323
  4. LEUCOVORIN CALCIUM [Suspect]
     Dosage: Q2W  , INTRAVENOUS NOS
     Route: 042
     Dates: start: 20040323, end: 20040323
  5. KYTRIL [Concomitant]
  6. SOLU-MEDROL [Concomitant]
  7. PRIMPERAN TAB [Concomitant]

REACTIONS (4)
  - HYPERTENSION [None]
  - LARYNGOSPASM [None]
  - RESPIRATORY DISTRESS [None]
  - STRIDOR [None]
